FAERS Safety Report 6379954-2 (Version None)
Quarter: 2009Q3

REPORT INFORMATION
  Report Type: 
  Country: None (occurrence: None)
  Receive Date: 20090928
  Receipt Date: 20090917
  Transmission Date: 20100115
  Serious: No
  Sender: FDA-Public Use
  Company Number: US-B.I. PHARMACEUTICALS,INC./RIDGEFIELD-2009-BP-11035BP

PATIENT
  Sex: Female

DRUGS (4)
  1. ZANTAC 150 [Suspect]
     Indication: DYSPEPSIA
     Dosage: 450 MG
     Route: 048
     Dates: start: 20090917
  2. AMITRIPTYLINE [Concomitant]
     Indication: FIBROMYALGIA
     Dosage: 25 MG
     Route: 048
  3. LORAZEPAM [Concomitant]
     Indication: STRESS
     Dosage: 2 MG
     Route: 048
  4. LORAZEPAM [Concomitant]
     Indication: ANXIETY

REACTIONS (1)
  - DRUG INEFFECTIVE [None]
